FAERS Safety Report 6422001-4 (Version None)
Quarter: 2009Q4

REPORT INFORMATION
  Report Type: 
  Country: None (occurrence: None)
  Receive Date: 20091030
  Receipt Date: 20091027
  Transmission Date: 20100525
  Serious: Yes (Life-Threatening, Hospitalization)
  Sender: FDA-Public Use
  Company Number: CH-BAYER-200937034GPV

PATIENT
  Age: 51 Year
  Sex: Male
  Weight: 83 kg

DRUGS (9)
  1. BETAFERON [Suspect]
     Indication: MULTIPLE SCLEROSIS
     Route: 058
     Dates: start: 19980101, end: 20091023
  2. ASPIRIN [Concomitant]
  3. PLAVIX [Concomitant]
  4. ACETAMINOPHEN [Concomitant]
  5. SORTIS [Concomitant]
  6. DEXAMETHASONE [Concomitant]
     Dates: start: 20091026
  7. EMSELEX [Concomitant]
  8. MAGNESIUM [Concomitant]
  9. MORPHIN [Concomitant]

REACTIONS (2)
  - BACK PAIN [None]
  - NEOPLASM MALIGNANT [None]
